FAERS Safety Report 9911790 (Version 2)
Quarter: 2014Q1

REPORT INFORMATION
  Report Type: Spontaneous
  Country: US (occurrence: US)
  Receive Date: 20140219
  Receipt Date: 20140219
  Transmission Date: 20141002
  Serious: No
  Sender: FDA-Public Use
  Company Number: US-MYLANLABS-2012S1009202

PATIENT
  Age: 88 Year
  Sex: Female

DRUGS (4)
  1. EPINEPHRINE [Suspect]
  2. EXCEDRIN [Suspect]
  3. KEFLEX [Suspect]
  4. DEMEROL [Suspect]

REACTIONS (1)
  - Drug hypersensitivity [Unknown]
